FAERS Safety Report 6334682-4 (Version None)
Quarter: 2009Q3

REPORT INFORMATION
  Report Type: 
  Country: None (occurrence: None)
  Receive Date: 20090831
  Receipt Date: 20090825
  Transmission Date: 20100115
  Serious: Yes (Hospitalization)
  Sender: FDA-Public Use
  Company Number: GB-BAYER-200928367GPV

PATIENT
  Age: 64 Year
  Sex: Male
  Weight: 122 kg

DRUGS (2)
  1. SORAFENIB [Suspect]
     Indication: RENAL NEOPLASM
     Route: 048
     Dates: start: 20081029, end: 20090805
  2. INFLIXIMAB [Suspect]
     Indication: DRUG USE FOR UNKNOWN INDICATION
     Route: 042
     Dates: start: 20081105, end: 20090701

REACTIONS (2)
  - PAIN [None]
  - RENAL ABSCESS [None]
